FAERS Safety Report 9103870 (Version 2)
Quarter: 2013Q2

REPORT INFORMATION
  Report Type: Report from Study
  Country: AU (occurrence: AU)
  Receive Date: 20130219
  Receipt Date: 20130508
  Transmission Date: 20140414
  Serious: Yes (Death)
  Sender: FDA-Public Use
  Company Number: AU-JNJFOC-20121200652

PATIENT
  Age: 53 Year
  Sex: Male
  Weight: 120 kg

DRUGS (5)
  1. STELARA [Suspect]
     Indication: PSORIASIS
     Dosage: TWO YEARS ON DRUG
     Route: 058
     Dates: start: 20110519, end: 20121101
  2. NEOTIGASON [Concomitant]
  3. FUMADERM [Concomitant]
  4. PERINDOPRIL [Concomitant]
  5. CHAMPIX [Concomitant]

REACTIONS (2)
  - Hepatic failure [Fatal]
  - Hepatic cirrhosis [Fatal]
